FAERS Safety Report 14585969 (Version 1)
Quarter: 2018Q1

REPORT INFORMATION
  Report Type: Spontaneous
  Country: US (occurrence: US)
  Receive Date: 20180228
  Receipt Date: 20180228
  Transmission Date: 20180509
  Serious: Yes (Life-Threatening, Hospitalization)
  Sender: FDA-Public Use
  Company Number: None

PATIENT
  Age: 23 Year
  Sex: Female
  Weight: 64.86 kg

DRUGS (8)
  1. MIRENA [Concomitant]
     Active Substance: LEVONORGESTREL
  2. XYZAL [Concomitant]
     Active Substance: LEVOCETIRIZINE DIHYDROCHLORIDE
  3. RIBOFLAVIN [Concomitant]
     Active Substance: RIBOFLAVIN
  4. VITAMIN B12 [Concomitant]
     Active Substance: CYANOCOBALAMIN
  5. VENLAFAXINE HCL 75MG TABLET [Suspect]
     Active Substance: VENLAFAXINE HYDROCHLORIDE
     Indication: MIGRAINE PROPHYLAXIS
     Dosage: ?          QUANTITY:L5 FUND} U! L LFL^FIN?JFU;?
     Route: 048
     Dates: start: 20180221, end: 20180221
  6. MAGNESIUM [Concomitant]
     Active Substance: MAGNESIUM
  7. DAILY VITAMIN [Concomitant]
     Active Substance: VITAMINS
  8. MAXALT [Concomitant]
     Active Substance: RIZATRIPTAN BENZOATE

REACTIONS (8)
  - Heart rate increased [None]
  - Burning sensation [None]
  - Diarrhoea [None]
  - Dysstasia [None]
  - Oropharyngeal pain [None]
  - Sensory disturbance [None]
  - Blood pressure increased [None]
  - Vomiting [None]

NARRATIVE: CASE EVENT DATE: 20180221
